FAERS Safety Report 7964061-5 (Version None)
Quarter: 2011Q4

REPORT INFORMATION
  Report Type: 
  Country: None (occurrence: None)
  Receive Date: 20111208
  Receipt Date: 20111111
  Transmission Date: 20120403
  Serious: No
  Sender: FDA-Public Use
  Company Number: US-BAYER-2011-110445

PATIENT
  Age: 84 Year
  Sex: Female
  Weight: 62 kg

DRUGS (4)
  1. SYNTHROID [Concomitant]
  2. SIMVASTATIN [Concomitant]
  3. AMLODIPINE [Concomitant]
  4. ALEVE (CAPLET) [Suspect]
     Dosage: 2 TABS QD
     Route: 048

REACTIONS (2)
  - MUSCULAR WEAKNESS [None]
  - MEDICATION ERROR [None]
